FAERS Safety Report 5196033-0 (Version None)
Quarter: 2006Q4

REPORT INFORMATION
  Report Type: 
  Country: None (occurrence: None)
  Receive Date: 20061219
  Receipt Date: 20050304
  Transmission Date: 20070319
  Serious: Yes (Other)
  Sender: FDA-Public Use
  Company Number: 104176

PATIENT
  Sex: Male

DRUGS (3)
  1. DAIVOBET [Suspect]
     Indication: PSORIASIS
     Dosage: TO
     Route: 061
     Dates: start: 20031101
  2. BETNOVATE (BETAMETHASONE) [Concomitant]
  3. EUMOVATE (CLOBETASONE BUTYRATE) [Concomitant]

REACTIONS (11)
  - ALOPECIA [None]
  - CARDIAC DISORDER [None]
  - CARDIOVASCULAR DISORDER [None]
  - DRUG ABUSER [None]
  - ERYTHEMA [None]
  - FLUID RETENTION [None]
  - MALAISE [None]
  - MUSCLE ATROPHY [None]
  - RESPIRATORY TRACT INFECTION [None]
  - SEPSIS [None]
  - SWELLING [None]
